FAERS Safety Report 17680571 (Version 15)
Quarter: 2023Q1

REPORT INFORMATION
  Report Type: Report from Study
  Country: BR (occurrence: BR)
  Receive Date: 20200417
  Receipt Date: 20230310
  Transmission Date: 20230418
  Serious: Yes (Hospitalization, Other)
  Sender: FDA-Public Use
  Company Number: BR-SHIRE-BR202013568

PATIENT
  Age: 18 Year
  Sex: Male

DRUGS (9)
  1. IDURSULFASE [Suspect]
     Active Substance: IDURSULFASE
     Indication: Mucopolysaccharidosis II
     Dosage: 6 DOSAGE FORM, 1/WEEK
     Route: 042
     Dates: start: 2010
  2. IDURSULFASE [Suspect]
     Active Substance: IDURSULFASE
     Dosage: 6 MILLIGRAM, 1/WEEK
     Route: 042
  3. IDURSULFASE [Suspect]
     Active Substance: IDURSULFASE
     Dosage: 6 DOSAGE FORM, 1/WEEK
     Route: 042
  4. IDURSULFASE [Suspect]
     Active Substance: IDURSULFASE
     Dosage: UNK
     Route: 042
  5. IDURSULFASE [Suspect]
     Active Substance: IDURSULFASE
     Dosage: UNK
     Route: 042
  6. IDURSULFASE [Suspect]
     Active Substance: IDURSULFASE
     Dosage: 6 DOSAGE FORM
     Route: 042
  7. CEFUROXIME [Concomitant]
     Active Substance: CEFUROXIME
     Route: 065
  8. BUTYLSCOPOLAMINE BROMIDE [Concomitant]
     Active Substance: BUTYLSCOPOLAMINE BROMIDE
     Route: 065
  9. PYRIDIUM [Concomitant]
     Active Substance: PHENAZOPYRIDINE
     Route: 065

REACTIONS (6)
  - Testicular torsion [Unknown]
  - Infection [Unknown]
  - COVID-19 [Recovering/Resolving]
  - Tonsillitis [Not Recovered/Not Resolved]
  - Inappropriate schedule of product administration [Unknown]
  - Product dose omission issue [Unknown]

NARRATIVE: CASE EVENT DATE: 20200501
